FAERS Safety Report 9166783 (Version 1)
Quarter: 2012Q4

REPORT INFORMATION
  Report Type: 
  Country: US (occurrence: US)
  Receive Date: 20121114
  Receipt Date: 20121114
  Transmission Date: 20130627
  Serious: Yes (Life-Threatening, Hospitalization, Other)
  Sender: FDA-Public Use
  Company Number: US-RB-046603-12

PATIENT
  Age: 11 Month
  Sex: Male

DRUGS (1)
  1. SUBOXONE FILM [Suspect]
     Indication: ACCIDENTAL DRUG INTAKE BY CHILD
     Dosage: Suboxone film
     Route: 048
     Dates: start: 20121029, end: 20121029

REACTIONS (3)
  - Accidental exposure to product by child [Recovered/Resolved]
  - Respiratory arrest [Recovered/Resolved]
  - Rash [Not Recovered/Not Resolved]
